FAERS Safety Report 6996411-0 (Version None)
Quarter: 2010Q3

REPORT INFORMATION
  Report Type: 
  Country: None (occurrence: None)
  Receive Date: 20100918
  Receipt Date: 20090305
  Transmission Date: 20110219
  Serious: No
  Sender: FDA-Public Use
  Company Number: US-WYE-H07994909

PATIENT
  Age: 74 Year
  Sex: Female
  Weight: 54.48 kg

DRUGS (3)
  1. ALAVERT [Suspect]
     Indication: HYPERSENSITIVITY
     Dosage: ONE TO TWO TABLETS DAILY
     Route: 048
     Dates: start: 20080101
  2. EFFEXOR [Concomitant]
  3. VITAMINS [Concomitant]

REACTIONS (4)
  - COELIAC DISEASE [None]
  - CONDITION AGGRAVATED [None]
  - DRUG EFFECT DECREASED [None]
  - OVERDOSE [None]
